FAERS Safety Report 4616244-X (Version None)
Quarter: 2005Q1

REPORT INFORMATION
  Report Type: 
  Country: None (occurrence: None)
  Receive Date: 20050321
  Receipt Date: 20050302
  Transmission Date: 20050727
  Serious: Yes (Hospitalization)
  Sender: FDA-Public Use
  Company Number: 2005-BP-03320BP

PATIENT
  Age: 39 Year
  Sex: Male
  Weight: 52.57 kg

DRUGS (7)
  1. TIPRANAVIR / RITONAVIR CAPSULES [Suspect]
     Indication: HIV INFECTION
     Dosage: TPV/R 1000/400 (SEE TEXT, STRENGTH:  250/100 MG),PO
     Route: 048
     Dates: start: 20040809
  2. IBUPROFEN [Suspect]
     Dates: start: 20050215
  3. CYCLOBENAZPINE [Suspect]
     Dates: start: 20050215
  4. FUROSEMIDE [Suspect]
     Dates: start: 20050105
  5. COMBIVIR [Concomitant]
  6. DIDANOSINE [Concomitant]
  7. ENFUVIRTIDE (ENFUVIRTIDE) [Concomitant]

REACTIONS (3)
  - BACK PAIN [None]
  - DERMATITIS EXFOLIATIVE [None]
  - DERMATITIS PSORIASIFORM [None]
